FAERS Safety Report 5328976-9 (Version None)
Quarter: 2007Q2

REPORT INFORMATION
  Report Type: 
  Country: None (occurrence: None)
  Receive Date: 20070515
  Receipt Date: 20070502
  Transmission Date: 20071010
  Serious: Yes (Other)
  Sender: FDA-Public Use
  Company Number: 36716

PATIENT

DRUGS (2)
  1. LORAZEPAM INJ. USP 4MG/ML (10ML) - BEDFORD LABS INC. [Suspect]
  2. MIDAZOLAM HCI INJECTION 50 MG/10 ML [Suspect]

REACTIONS (2)
  - CIRCUMSTANCE OR INFORMATION CAPABLE OF LEADING TO MEDICATION ERROR [None]
  - PHARMACEUTICAL PRODUCT COMPLAINT [None]
